FAERS Safety Report 15660458 (Version 1)
Quarter: 2018Q4

REPORT INFORMATION
  Report Type: Spontaneous
  Country: US (occurrence: US)
  Receive Date: 20181115
  Receipt Date: 20181115
  Transmission Date: 20190205
  Serious: Yes (Hospitalization)
  Sender: FDA-Public Use
  Company Number: None

PATIENT
  Age: 44 Year
  Sex: Female
  Weight: 104 kg

DRUGS (6)
  1. DAUNORUBICIN [Suspect]
     Active Substance: DAUNORUBICIN
     Dates: end: 20180810
  2. METHOTREXATE. [Suspect]
     Active Substance: METHOTREXATE
     Dates: end: 20180802
  3. CYTARABINE (63878) [Suspect]
     Active Substance: CYTARABINE
     Dates: end: 20180810
  4. DEXAMETHASONE. [Suspect]
     Active Substance: DEXAMETHASONE
     Dates: end: 20180809
  5. PEG-L-ASPARAGINASE [Suspect]
     Active Substance: PEGASPARGASE
     Dates: end: 20180806
  6. VINCRISTINE SULFATE. [Suspect]
     Active Substance: VINCRISTINE SULFATE
     Dates: end: 20180810

REACTIONS (8)
  - Subdural haematoma [None]
  - Acquired antithrombin III deficiency [None]
  - Hypofibrinogenaemia [None]
  - Superior sagittal sinus thrombosis [None]
  - Protein S deficiency [None]
  - Protein C deficiency [None]
  - Coagulopathy [None]
  - Platelet count decreased [None]

NARRATIVE: CASE EVENT DATE: 20180814
